FAERS Safety Report 4749428-0 (Version None)
Quarter: 2005Q3

REPORT INFORMATION
  Report Type: 
  Country: None (occurrence: None)
  Receive Date: 20050822
  Receipt Date: 20050627
  Transmission Date: 20060218
  Serious: Yes (Hospitalization)
  Sender: FDA-Public Use
  Company Number: JP-SOLVAY-00305002131

PATIENT
  Age: 17230 Day
  Sex: Male
  Weight: 70 kg

DRUGS (7)
  1. RIZE [Concomitant]
     Indication: INSOMNIA
     Dosage: DAILY DOSE: 1 DOSAGE FORM
     Route: 048
     Dates: start: 20050523, end: 20050604
  2. DEPROMEL 25 [Suspect]
     Indication: DEPRESSION
     Dosage: DAILY DOSE: 200 MILLIGRAM(S)
     Route: 048
     Dates: start: 20050414, end: 20050604
  3. AMOBAN [Concomitant]
     Indication: INSOMNIA
     Dosage: DAILY DOSE: 10 MILLIGRAM(S)
     Route: 048
     Dates: start: 20050521, end: 20050604
  4. LIMAS [Suspect]
     Indication: MANIA
     Dosage: DAILY DOSE: 200 MILLIGRAM(S)
     Route: 048
     Dates: start: 20050521, end: 20050604
  5. BETAMAC [Concomitant]
     Indication: DEPRESSION
     Dosage: DAILY DOSE: 75 MILLIGRAM(S)
     Route: 048
     Dates: start: 20050414, end: 20050604
  6. PL [Concomitant]
     Indication: NASOPHARYNGITIS
     Dosage: DAILY DOSE:  UNKNOWN
     Route: 048
  7. PABRON [Concomitant]
     Indication: NASOPHARYNGITIS
     Dosage: DAILY DOSE:  UNKNOWN
     Route: 065

REACTIONS (1)
  - NEUROLEPTIC MALIGNANT SYNDROME [None]
